FAERS Safety Report 21029346 (Version 6)
Quarter: 2023Q4

REPORT INFORMATION
  Report Type: Report from Study
  Country: US (occurrence: US)
  Receive Date: 20220630
  Receipt Date: 20231104
  Transmission Date: 20240110
  Serious: Yes (Other)
  Sender: FDA-Public Use
  Company Number: US-NOVARTISTESTPH-NVSC2022US149006

PATIENT
  Age: 60 Year
  Sex: Female

DRUGS (4)
  1. KESIMPTA [Suspect]
     Active Substance: OFATUMUMAB
     Indication: Multiple sclerosis
     Dosage: 20 MG, QMO
     Route: 058
     Dates: start: 20220109
  2. MYRBETRIQ [Concomitant]
     Active Substance: MIRABEGRON
     Indication: Urinary incontinence
     Dosage: UNK (STOPPED APPROXIMATELY 1 MONTH AGO)
     Route: 065
  3. MYRBETRIQ [Concomitant]
     Active Substance: MIRABEGRON
     Indication: Urinary tract infection
  4. UNSPECIFIED INGREDIENT [Concomitant]
     Active Substance: UNSPECIFIED INGREDIENT
     Indication: Blood cholesterol increased
     Dosage: UNK (STOPPED APPROXIMATELY 1 MONTH AGO)
     Route: 065

REACTIONS (8)
  - Craniofacial fracture [Unknown]
  - Muscle spasms [Recovering/Resolving]
  - Stomatitis [Not Recovered/Not Resolved]
  - Fall [Recovering/Resolving]
  - Salivary duct obstruction [Unknown]
  - Swelling face [Unknown]
  - Lip injury [Unknown]
  - Lip swelling [Unknown]

NARRATIVE: CASE EVENT DATE: 20220601
